FAERS Safety Report 8155738-X (Version None)
Quarter: 2012Q1

REPORT INFORMATION
  Report Type: 
  Country: None (occurrence: None)
  Receive Date: 20120222
  Receipt Date: 20120213
  Transmission Date: 20120608
  Serious: Yes (Other)
  Sender: FDA-Public Use
  Company Number: US-NAPPMUNDI-USA-2012-0082259

PATIENT
  Sex: Female

DRUGS (2)
  1. ADVIL PM                           /05810501/ [Concomitant]
     Indication: BREAKTHROUGH PAIN
  2. OXYCONTIN [Suspect]
     Indication: PRODUCT USED FOR UNKNOWN INDICATION
     Dosage: 320 MG, BID
     Route: 048

REACTIONS (2)
  - PAIN [None]
  - RENAL TRANSPLANT [None]
